FAERS Safety Report 5955216-X (Version None)
Quarter: 2008Q4

REPORT INFORMATION
  Report Type: 
  Country: None (occurrence: None)
  Receive Date: 20081117
  Receipt Date: 20081104
  Transmission Date: 20090506
  Serious: Yes (Hospitalization, Other)
  Sender: FDA-Public Use
  Company Number: CH-ROCHE-590587

PATIENT
  Sex: Female

DRUGS (2)
  1. BONIVA [Suspect]
     Indication: POLYMYALGIA RHEUMATICA
     Dosage: INDICATION: LONG TERM STEROID THERAPY
     Route: 048
     Dates: start: 20080407, end: 20080901
  2. PREDNISONE TAB [Concomitant]
     Indication: POLYMYALGIA RHEUMATICA
     Dosage: STOP DATE: OCTOBER 2008
     Dates: end: 20080101

REACTIONS (4)
  - ABSCESS JAW [None]
  - ADRENAL INSUFFICIENCY [None]
  - OSTEONECROSIS [None]
  - SEPSIS [None]
